FAERS Safety Report 17804633 (Version 3)
Quarter: 2020Q4

REPORT INFORMATION
  Report Type: Spontaneous
  Country: DE (occurrence: DE)
  Receive Date: 20200519
  Receipt Date: 20201211
  Transmission Date: 20210113
  Serious: Yes (Hospitalization, Other)
  Sender: FDA-Public Use
  Company Number: DE-PFIZER INC-2020198624

PATIENT
  Sex: Female

DRUGS (1)
  1. ZESSLY [Suspect]
     Active Substance: INFLIXIMAB
     Dosage: 300 MG OTHER (EVERY 6 WEEKS)
     Route: 042
     Dates: end: 20200106

REACTIONS (3)
  - Rheumatoid arthritis [Recovered/Resolved]
  - Haemangioma of liver [Unknown]
  - Hepatic mass [Unknown]

NARRATIVE: CASE EVENT DATE: 20190210
